FAERS Safety Report 9909330 (Version 2)
Quarter: 2014Q1

REPORT INFORMATION
  Report Type: Spontaneous
  Country: US (occurrence: US)
  Receive Date: 20140219
  Receipt Date: 20140219
  Transmission Date: 20141002
  Serious: Yes (Other)
  Sender: FDA-Public Use
  Company Number: US-GILEAD-2012-0048953

PATIENT
  Sex: Male

DRUGS (2)
  1. LETAIRIS [Suspect]
     Indication: PULMONARY HYPERTENSION
     Dosage: 10 MG, UNK
     Route: 048
     Dates: start: 20111020, end: 20120113
  2. LETAIRIS [Suspect]
     Dosage: 5 UNK, UNK
     Route: 048

REACTIONS (4)
  - Drug ineffective [Unknown]
  - Weight increased [Unknown]
  - Swelling [Unknown]
  - Oedema [Unknown]
